FAERS Safety Report 5123441-6 (Version None)
Quarter: 2006Q4

REPORT INFORMATION
  Report Type: 
  Country: None (occurrence: None)
  Receive Date: 20061005
  Receipt Date: 20060922
  Transmission Date: 20070319
  Serious: Yes (Other)
  Sender: FDA-Public Use
  Company Number: 2006115709

PATIENT
  Sex: Male

DRUGS (7)
  1. INSPRA [Suspect]
     Dosage: 25 MG
     Dates: start: 20060601
  2. ALDACTONE [Suspect]
     Dosage: 25 MG
  3. CARDENSIEL             (BISOPROLOL FUMARATE) [Concomitant]
  4. RAMIPRIL [Concomitant]
  5. LASIX [Concomitant]
  6. PRAVASTATIN [Concomitant]
  7. ASPIRIN [Concomitant]

REACTIONS (3)
  - GYNAECOMASTIA [None]
  - HAEMOLYSIS [None]
  - JAUNDICE [None]
